FAERS Safety Report 24798897 (Version 1)
Quarter: 2025Q1

REPORT INFORMATION
  Report Type: Spontaneous
  Country: US (occurrence: US)
  Receive Date: 20250102
  Receipt Date: 20250102
  Transmission Date: 20250408
  Serious: No
  Sender: SUNOVION
  Company Number: US-SMPA-2024SPA006110AA

PATIENT

DRUGS (5)
  1. ORGOVYX [Suspect]
     Active Substance: RELUGOLIX
     Indication: Prostate cancer
     Dosage: UNK, QD
     Route: 065
  2. LAMOTRIGINE [Concomitant]
     Active Substance: LAMOTRIGINE
     Dosage: UNK UNK, BID
     Route: 065
  3. ABILIFY ASIMTUFII [Concomitant]
     Active Substance: ARIPIPRAZOLE
     Route: 065
  4. SIMVASTATIN [Concomitant]
     Active Substance: SIMVASTATIN
     Route: 065
  5. NUBEQA [Concomitant]
     Active Substance: DAROLUTAMIDE
     Route: 065

REACTIONS (2)
  - Abdominal pain upper [Unknown]
  - Fatigue [Unknown]
